FAERS Safety Report 5056895-4 (Version None)
Quarter: 2006Q2

REPORT INFORMATION
  Report Type: 
  Country: None (occurrence: None)
  Receive Date: 20060620
  Receipt Date: 20050126
  Transmission Date: 20061013
  Serious: Yes (Life-Threatening)
  Sender: FDA-Public Use
  Company Number: MK200501-0226-1

PATIENT
  Sex: Female

DRUGS (1)
  1. OPTIRAY 320 [Suspect]
     Indication: UROGRAM
     Dosage: 100CC,IV,ONCE
     Route: 042
     Dates: start: 20041129, end: 20041129

REACTIONS (12)
  - ANAPHYLACTIC SHOCK [None]
  - DYSPNOEA [None]
  - HEADACHE [None]
  - HYPOTENSION [None]
  - LOSS OF CONSCIOUSNESS [None]
  - NASAL CONGESTION [None]
  - PERIORBITAL OEDEMA [None]
  - PRURITUS [None]
  - TACHYCARDIA [None]
  - TONGUE OEDEMA [None]
  - URTICARIA [None]
  - VOMITING [None]
